FAERS Safety Report 6932650-2 (Version None)
Quarter: 2010Q3

REPORT INFORMATION
  Report Type: 
  Country: None (occurrence: None)
  Receive Date: 20100819
  Receipt Date: 20100811
  Transmission Date: 20110219
  Serious: Yes (Hospitalization)
  Sender: FDA-Public Use
  Company Number: IT-CEPHALON-2010004216

PATIENT
  Sex: Female
  Weight: 63 kg

DRUGS (5)
  1. TRISENOX [Suspect]
     Indication: ACUTE PROMYELOCYTIC LEUKAEMIA
     Dates: start: 20090529, end: 20090724
  2. ATRA [Suspect]
     Indication: ACUTE PROMYELOCYTIC LEUKAEMIA
     Dates: start: 20090523, end: 20090625
  3. COTRIM [Concomitant]
     Indication: PROPHYLAXIS
     Route: 048
     Dates: start: 20090612, end: 20090811
  4. ACYCLOVIR [Concomitant]
     Indication: VIRAL INFECTION
     Route: 042
     Dates: start: 20090727
  5. GENTAMICIN [Concomitant]
     Indication: VIRAL INFECTION
     Dates: start: 20090804

REACTIONS (2)
  - HYDROCEPHALUS [None]
  - LEUKOCYTOCLASTIC VASCULITIS [None]
